FAERS Safety Report 18733338 (Version 2)
Quarter: 2021Q1

REPORT INFORMATION
  Report Type: Spontaneous
  Country: US (occurrence: US)
  Receive Date: 20210113
  Receipt Date: 20210203
  Transmission Date: 20210419
  Serious: No
  Sender: FDA-Public Use
  Company Number: US-BEH-2021126956

PATIENT
  Sex: Female

DRUGS (2)
  1. HIZENTRA [Suspect]
     Active Substance: HUMAN IMMUNOGLOBULIN G
     Dosage: 6 GRAMS, QW (WEEKLY)
     Route: 058
  2. HIZENTRA [Suspect]
     Active Substance: HUMAN IMMUNOGLOBULIN G
     Indication: HUMORAL IMMUNE DEFECT
     Dosage: 6 GRAM, QW
     Route: 058
     Dates: start: 20181228

REACTIONS (5)
  - Ill-defined disorder [Unknown]
  - Infection [Unknown]
  - Peripheral swelling [Unknown]
  - Headache [Unknown]
  - Pyrexia [Unknown]
